FAERS Safety Report 8494787 (Version 2)
Quarter: 2012Q4

REPORT INFORMATION
  Report Type: 
  Country: FR (occurrence: FR)
  Receive Date: 20120404
  Receipt Date: 20120910
  Transmission Date: 20130627
  Serious: Yes (Life-Threatening, Hospitalization, Other)
  Sender: FDA-Public Use
  Company Number: FR-BRISTOL-MYERS SQUIBB COMPANY-16483695

PATIENT
  Age: 75 Year
  Sex: Female
  Weight: 90 kg

DRUGS (7)
  1. COUMADIN [Suspect]
     Indication: ARRHYTHMIA
     Dates: start: 20111222, end: 20120412
  2. PREVISCAN [Concomitant]
  3. IRON CHEWS [Concomitant]
  4. ATACAND [Concomitant]
  5. ATORVASTATIN [Concomitant]
  6. ESOMEPRAZOLE [Concomitant]
  7. FUROSEMIDE [Concomitant]

REACTIONS (3)
  - Coma [Unknown]
  - Sepsis [Unknown]
  - Alopecia [Recovered/Resolved]
